FAERS Safety Report 6208342-4 (Version None)
Quarter: 2009Q2

REPORT INFORMATION
  Report Type: 
  Country: None (occurrence: None)
  Receive Date: 20090522
  Receipt Date: 20090511
  Transmission Date: 20091009
  Serious: No
  Sender: FDA-Public Use
  Company Number: 006434

PATIENT
  Age: 16 Year

DRUGS (9)
  1. BUSULFEX [Suspect]
     Indication: STEM CELL TRANSPLANT
     Dosage: 16 MG/KG,
  2. CYCLOPHOSPHAMIDE [Suspect]
     Indication: STEM CELL TRANSPLANT
     Dosage: 200 MG/KG,
  3. CYCLOSPORINE [Concomitant]
  4. INFLIXIMAB (INFLIXIMAB) [Concomitant]
  5. MYCOPHENOLIC ACID [Concomitant]
  6. PREDNISOLONE ACETATE [Concomitant]
  7. TACROLIMUS [Concomitant]
  8. SULFAMETHOXAZOLE AND TRIMETHOPRIM [Concomitant]
  9. ITRACONAZOLE [Concomitant]

REACTIONS (14)
  - ACUTE GRAFT VERSUS HOST DISEASE IN INTESTINE [None]
  - ACUTE GRAFT VERSUS HOST DISEASE IN LIVER [None]
  - BRONCHIECTASIS [None]
  - CYSTITIS HAEMORRHAGIC [None]
  - CYSTITIS VIRAL [None]
  - DISEASE RECURRENCE [None]
  - DRUG INEFFECTIVE [None]
  - HUMAN POLYOMAVIRUS INFECTION [None]
  - HYPERTENSION [None]
  - OSTEONECROSIS [None]
  - OSTEOPOROSIS [None]
  - RENAL IMPAIRMENT [None]
  - TREMOR [None]
  - UPPER RESPIRATORY TRACT INFECTION [None]
